FAERS Safety Report 8217668-4 (Version None)
Quarter: 2012Q1

REPORT INFORMATION
  Report Type: 
  Country: None (occurrence: None)
  Receive Date: 20120315
  Receipt Date: 20120301
  Transmission Date: 20120608
  Serious: Yes (Hospitalization)
  Sender: FDA-Public Use
  Company Number: 2012000043

PATIENT
  Age: 7 Year
  Sex: Female

DRUGS (1)
  1. ACEON [Suspect]
     Indication: CARDIOMYOPATHY
     Dosage: 2 MG, QD, ORAL
     Route: 048
     Dates: start: 20060101, end: 20111013

REACTIONS (2)
  - PRURITUS [None]
  - RASH MACULO-PAPULAR [None]
